FAERS Safety Report 6443840-X (Version None)
Quarter: 2009Q4

REPORT INFORMATION
  Report Type: 
  Country: None (occurrence: None)
  Receive Date: 20091117
  Receipt Date: 20091111
  Transmission Date: 20100525
  Serious: Yes (Other)
  Sender: FDA-Public Use
  Company Number: US-GENENTECH-290073

PATIENT
  Sex: Female

DRUGS (4)
  1. XOLAIR [Suspect]
     Indication: ASTHMA
     Dosage: 150 MG, UNK
     Dates: start: 20090928
  2. ADVAIR DISKUS 100/50 [Concomitant]
     Indication: ASTHMA
     Dosage: UNK
     Route: 048
  3. PROAIR HFA [Concomitant]
     Indication: ASTHMA
     Dosage: UNK
     Route: 048
  4. MOTRIN [Concomitant]
     Indication: CHONDRITIS
     Dosage: UNK
     Route: 048
     Dates: end: 20090915

REACTIONS (1)
  - ANAPHYLACTIC REACTION [None]
